FAERS Safety Report 10347596 (Version 2)
Quarter: 2014Q3

REPORT INFORMATION
  Report Type: Spontaneous
  Country: PT (occurrence: PT)
  Receive Date: 20140729
  Receipt Date: 20140825
  Transmission Date: 20150326
  Serious: Yes (Hospitalization)
  Sender: FDA-Public Use
  Company Number: PT-WATSON-2014-16061

PATIENT
  Age: 39 Year
  Sex: Female
  Weight: 55 kg

DRUGS (5)
  1. ORADEXON                           /00016002/ [Concomitant]
     Indication: PREMEDICATION
     Dosage: 20 MG, 1/ THREE WEEKS; ASPEN PHARMA TRADING LTD.
     Route: 042
     Dates: start: 20140526
  2. ONDANSETROM                        /00955301/ [Concomitant]
     Indication: PREMEDICATION
     Dosage: 8 MG, 1/ THREE WEEKS
     Route: 042
     Dates: start: 20140526
  3. TAXOTERE [Interacting]
     Active Substance: DOCETAXEL
     Indication: BREAST NEOPLASM
     Dosage: 80 MG, 1/ THREE WEEKS; 80 MG/4 ML
     Route: 042
     Dates: start: 20140526
  4. ENDOXAN                            /00021102/ [Interacting]
     Active Substance: CYCLOPHOSPHAMIDE
     Indication: BREAST NEOPLASM
     Dosage: 760 MG, 1/ THREE WEEKS (BAXTER M?DICO-FARMAC?UTICA, LDA.)
     Route: 042
     Dates: start: 20140526
  5. DOXORUBICINA ACTAVIS [Suspect]
     Active Substance: DOXORUBICIN HYDROCHLORIDE
     Indication: BREAST NEOPLASM
     Dosage: 76 MG, 1/ THREE WEEKS
     Route: 042
     Dates: start: 20140526

REACTIONS (9)
  - Haemoglobin decreased [Recovered/Resolved]
  - Febrile neutropenia [Recovered/Resolved]
  - Stomatitis [Recovered/Resolved]
  - Drug interaction [None]
  - Mucosal inflammation [Recovered/Resolved]
  - Neutrophil count decreased [Recovered/Resolved]
  - Anaemia [Recovered/Resolved]
  - Diarrhoea [Recovered/Resolved]
  - White blood cell count decreased [Recovered/Resolved]

NARRATIVE: CASE EVENT DATE: 20140602
